FAERS Safety Report 16385025 (Version 1)
Quarter: 2019Q2

REPORT INFORMATION
  Report Type: Spontaneous
  Country: CA (occurrence: CA)
  Receive Date: 20190603
  Receipt Date: 20190603
  Transmission Date: 20190711
  Serious: Yes (Other)
  Sender: FDA-Public Use
  Company Number: CA-PFIZER INC-2019235964

PATIENT
  Sex: Female
  Weight: 65.76 kg

DRUGS (1)
  1. EFFEXOR XR [Suspect]
     Active Substance: VENLAFAXINE HYDROCHLORIDE
     Indication: DEPRESSION
     Dosage: 150 MG, 1 EVERY 24 HOURS
     Route: 048

REACTIONS (2)
  - Respiratory distress [Unknown]
  - Cleft palate [Unknown]
